FAERS Safety Report 8310429 (Version 2)
Quarter: 2013Q1

REPORT INFORMATION
  Report Type: Spontaneous
  Country: FR (occurrence: FR)
  Receive Date: 20111223
  Receipt Date: 20130308
  Transmission Date: 20140127
  Serious: Yes (Life-Threatening, Hospitalization)
  Sender: FDA-Public Use
  Company Number: FR-B.I. PHARMACEUTICALS,INC./RIDGEFIELD-2006-FF-00017FF

PATIENT
  Age: 36 Year
  Sex: Female
  Weight: 64 kg

DRUGS (8)
  1. VIRAMUNE [Suspect]
     Indication: HIV INFECTION
     Dosage: 400 MG
     Route: 048
     Dates: start: 20051206, end: 20060102
  2. COMBIVIR [Concomitant]
     Indication: HIV INFECTION
     Route: 048
     Dates: start: 20051206
  3. PARACETAMOL [Concomitant]
     Indication: PYREXIA
  4. ZYRTEC [Concomitant]
     Dosage: 10 MG
     Route: 048
     Dates: start: 20051206, end: 20060102
  5. COARTEM [Concomitant]
     Indication: MALARIA PROPHYLAXIS
     Route: 048
     Dates: start: 20051225, end: 20051225
  6. QUINIMAX [Concomitant]
     Indication: MALARIA
     Dosage: 1.5 G
     Route: 042
     Dates: start: 20051226, end: 20051228
  7. QUINIMAX [Concomitant]
     Indication: MALARIA
     Dosage: 1.5 G
     Route: 048
     Dates: start: 20051228, end: 20051231
  8. OFLOCET [Concomitant]
     Indication: TYPHOID FEVER
     Dosage: 400 MG
     Route: 048
     Dates: start: 20051229, end: 20051231

REACTIONS (4)
  - Hepatitis fulminant [Recovered/Resolved with Sequelae]
  - Hepatic encephalopathy [Recovered/Resolved with Sequelae]
  - Hepatic failure [Recovered/Resolved with Sequelae]
  - Liver transplant [Recovered/Resolved with Sequelae]
